FAERS Safety Report 7444606-4 (Version None)
Quarter: 2011Q2

REPORT INFORMATION
  Report Type: 
  Country: None (occurrence: None)
  Receive Date: 20110427
  Receipt Date: 20110427
  Transmission Date: 20111010
  Serious: Yes (Other)
  Sender: FDA-Public Use
  Company Number: None

PATIENT
  Sex: Female
  Weight: 86.1834 kg

DRUGS (1)
  1. CYMBALTA [Suspect]
     Indication: DEPRESSION
     Dosage: 60MG DAILY PO
     Route: 048
     Dates: start: 20100301, end: 20110423

REACTIONS (11)
  - ABNORMAL DREAMS [None]
  - ARTHRALGIA [None]
  - MOTION SICKNESS [None]
  - DYSARTHRIA [None]
  - RETCHING [None]
  - NIGHTMARE [None]
  - SOMNOLENCE [None]
  - WITHDRAWAL SYNDROME [None]
  - INSOMNIA [None]
  - DYSKINESIA [None]
  - NAUSEA [None]
